FAERS Safety Report 9475210 (Version 1)
Quarter: 2013Q3

REPORT INFORMATION
  Report Type: Spontaneous
  Country: US (occurrence: US)
  Receive Date: 20130825
  Receipt Date: 20130825
  Transmission Date: 20140515
  Serious: Yes (Hospitalization)
  Sender: FDA-Public Use
  Company Number: US-MYLANLABS-2013S1018194

PATIENT
  Age: 37 Year
  Sex: Female

DRUGS (3)
  1. THIAMAZOLE [Suspect]
     Indication: HYPERTHYROIDISM
     Route: 065
  2. PROPYLTHIOURACIL [Suspect]
     Indication: HYPERTHYROIDISM
     Route: 065
  3. ATENOLOL [Concomitant]
     Dosage: 10MG DAILY
     Route: 065

REACTIONS (3)
  - Agranulocytosis [Recovered/Resolved]
  - Ecthyma [Recovering/Resolving]
  - Exposure during pregnancy [Unknown]
